FAERS Safety Report 8425989-5 (Version None)
Quarter: 2012Q2

REPORT INFORMATION
  Report Type: 
  Country: None (occurrence: None)
  Receive Date: 20120604
  Receipt Date: 20120522
  Transmission Date: 20120825
  Serious: Yes (Life-Threatening)
  Sender: FDA-Public Use
  Company Number: DSA_57529_2012

PATIENT
  Sex: Female

DRUGS (8)
  1. OFLOXACIN [Suspect]
     Dosage: (200 MG BID INTRAVENOUS (NOT OTHERWISE SPECIFIED))
     Route: 042
     Dates: start: 20120414, end: 20120418
  2. DOXYCYCLINE [Concomitant]
  3. TAMIFLU [Suspect]
     Indication: PRODUCT USED FOR UNKNOWN INDICATION
     Dosage: (75 MG BID ORAL)
     Route: 048
  4. CEFTRIAXON [Suspect]
     Dosage: 1 G QD INTRAVENOUS (NOT OTHERWISE SPECIFIED))
     Route: 042
     Dates: start: 20120414, end: 20120418
  5. LOVENOX [Concomitant]
  6. FLAGYL [Suspect]
     Indication: PRODUCT USED FOR UNKNOWN INDICATION
     Dosage: (500 MG TID ORAL)
     Route: 048
     Dates: start: 20120414, end: 20120424
  7. TRAMADOL HCL [Concomitant]
  8. NEXIUM [Concomitant]

REACTIONS (6)
  - PYREXIA [None]
  - COUGH [None]
  - RHABDOMYOLYSIS [None]
  - ARTHRALGIA [None]
  - HEADACHE [None]
  - ABDOMINAL PAIN UPPER [None]
